FAERS Safety Report 9518498 (Version 1)
Quarter: 2013Q3

REPORT INFORMATION
  Report Type: Spontaneous
  Country: US (occurrence: None)
  Receive Date: 20130910
  Receipt Date: 20130910
  Transmission Date: 20140515
  Serious: Yes (Hospitalization)
  Sender: FDA-Public Use
  Company Number: 2013P1019074

PATIENT
  Age: 42 Year
  Sex: Female

DRUGS (2)
  1. INFUMORPH [Suspect]
     Indication: PAIN
     Route: 037
     Dates: end: 20130820
  2. INFUMORPH [Suspect]
     Indication: POST LAMINECTOMY SYNDROME
     Route: 037
     Dates: end: 20130820

REACTIONS (5)
  - Medical device complication [None]
  - Overdose [None]
  - Mental status changes [None]
  - Depressed level of consciousness [None]
  - Respiratory depression [None]
